FAERS Safety Report 25375583 (Version 1)
Quarter: 2025Q2

REPORT INFORMATION
  Report Type: Spontaneous
  Country: US (occurrence: US)
  Receive Date: 20250529
  Receipt Date: 20250529
  Transmission Date: 20250716
  Serious: No
  Sender: MERCK SHARP & DOHME LLC
  Company Number: US-009507513-2290566

PATIENT
  Sex: Male

DRUGS (6)
  1. VERQUVO [Suspect]
     Active Substance: VERICIGUAT
     Indication: Cardiac failure
     Route: 048
  2. ENTRESTO [Concomitant]
     Active Substance: SACUBITRIL\VALSARTAN
  3. JARDIANCE [Concomitant]
     Active Substance: EMPAGLIFLOZIN
  4. REPATHA [Concomitant]
     Active Substance: EVOLOCUMAB
  5. GABAPENTIN [Concomitant]
     Active Substance: GABAPENTIN
  6. CLOPIDOGREL [Concomitant]
     Active Substance: CLOPIDOGREL BISULFATE

REACTIONS (1)
  - Diarrhoea [Recovered/Resolved]
